FAERS Safety Report 15554765 (Version 3)
Quarter: 2018Q4

REPORT INFORMATION
  Report Type: Spontaneous
  Country: SE (occurrence: SE)
  Receive Date: 20181026
  Receipt Date: 20181219
  Transmission Date: 20190205
  Serious: Yes (Hospitalization, Other)
  Sender: FDA-Public Use
  Company Number: SE-CELLTRION INC.-2018SE023392

PATIENT

DRUGS (5)
  1. ZANTAC [Concomitant]
     Active Substance: RANITIDINE HYDROCHLORIDE
     Dosage: UNK
     Dates: start: 201705
  2. INFLECTRA [Suspect]
     Active Substance: INFLIXIMAB-DYYB
     Indication: COLITIS ULCERATIVE
     Dosage: 500 MG, MONTHLY (APPROXIMATELY ONCEMONTHLY
     Route: 042
     Dates: start: 201709, end: 201808
  3. URSOFALK [Concomitant]
     Active Substance: URSODIOL
     Dosage: UNK
  4. PREDNISOLONE. [Concomitant]
     Active Substance: PREDNISOLONE
     Dosage: UNK
  5. OMEPRAZOLE. [Concomitant]
     Active Substance: OMEPRAZOLE
     Dosage: UNK
     Dates: start: 201809

REACTIONS (4)
  - Pericarditis [Not Recovered/Not Resolved]
  - Product use issue [Unknown]
  - Chest pain [Not Recovered/Not Resolved]
  - Listeriosis [Unknown]

NARRATIVE: CASE EVENT DATE: 201709
